FAERS Safety Report 6634496-1 (Version None)
Quarter: 2010Q1

REPORT INFORMATION
  Report Type: 
  Country: None (occurrence: None)
  Receive Date: 20100311
  Receipt Date: 20100311
  Transmission Date: 20100710
  Serious: No
  Sender: FDA-Public Use
  Company Number: None

PATIENT
  Sex: Female
  Weight: 62.7 kg

DRUGS (2)
  1. TYLENOL (CAPLET) [Suspect]
     Indication: MUSCULOSKELETAL STIFFNESS
     Dosage: 1 OR 2 DAILY ORAL
     Route: 048
     Dates: start: 20090601, end: 20091226
  2. TYLENOL (CAPLET) [Suspect]
     Indication: PAIN
     Dosage: 1 OR 2 DAILY ORAL
     Route: 048
     Dates: start: 20090601, end: 20091226

REACTIONS (4)
  - ABDOMINAL PAIN UPPER [None]
  - DIARRHOEA [None]
  - DYSPEPSIA [None]
  - PRODUCT QUALITY ISSUE [None]
